FAERS Safety Report 7701315-1 (Version None)
Quarter: 2011Q3

REPORT INFORMATION
  Report Type: 
  Country: None (occurrence: None)
  Receive Date: 20110822
  Receipt Date: 20110817
  Transmission Date: 20111222
  Serious: Yes (Hospitalization, Other)
  Sender: FDA-Public Use
  Company Number: BE-BAYER-2011-074032

PATIENT
  Sex: Male

DRUGS (1)
  1. SORAFENIB (RAF KINASE INHIBITOR) [Suspect]
     Indication: HEPATIC NEOPLASM MALIGNANT
     Dosage: 800 MG, DAILY
     Dates: start: 20110722, end: 20110817

REACTIONS (4)
  - NAUSEA [None]
  - HEPATIC NEOPLASM MALIGNANT [None]
  - VOMITING [None]
  - MALAISE [None]
